FAERS Safety Report 9440954 (Version 1)
Quarter: 2013Q3

REPORT INFORMATION
  Report Type: Spontaneous
  Country: US (occurrence: US)
  Receive Date: 20130805
  Receipt Date: 20130805
  Transmission Date: 20140515
  Serious: No
  Sender: FDA-Public Use
  Company Number: US-BAYER-2013-094640

PATIENT
  Age: 87 Year
  Sex: Female
  Weight: 48.07 kg

DRUGS (8)
  1. ALEVE CAPLET [Suspect]
     Indication: PAIN
     Dosage: 1 DF, BID
     Route: 048
     Dates: start: 2012
  2. ANTIVERT [Concomitant]
  3. ZOCOR [Concomitant]
  4. BUTALBITAL [Concomitant]
  5. IRON SUPPLEMENT [Concomitant]
  6. COLACE [Concomitant]
  7. TRAMADOL [Concomitant]
  8. BISACODYL [Concomitant]

REACTIONS (1)
  - Incorrect drug administration duration [None]
